FAERS Safety Report 5779705-6 (Version None)
Quarter: 2008Q2

REPORT INFORMATION
  Report Type: 
  Country: None (occurrence: None)
  Receive Date: 20080617
  Receipt Date: 20080603
  Transmission Date: 20081010
  Serious: Yes (Hospitalization)
  Sender: FDA-Public Use
  Company Number: DSA_62153_2008

PATIENT
  Age: 25 Year
  Sex: Male

DRUGS (5)
  1. DIHYDROERGOTAMINE MESYLATE [Suspect]
     Indication: MIGRAINE
     Dosage: (DF)
     Route: 040
  2. FENTANYL [Suspect]
     Indication: ANAESTHESIA
     Dosage: INTRATHECAL, 2UG/KG 1X ONTRAVENOUS BOLUS
     Route: 037
  3. MARIJUANA [Concomitant]
  4. METHYLENEDIOXYAMPHETAMINE [Concomitant]
  5. EPHEDRINE SUL CAP [Concomitant]

REACTIONS (1)
  - SEROTONIN SYNDROME [None]
